FAERS Safety Report 8406559-1 (Version None)
Quarter: 2012Q2

REPORT INFORMATION
  Report Type: 
  Country: None (occurrence: None)
  Receive Date: 20120604
  Receipt Date: 20120524
  Transmission Date: 20120825
  Serious: Yes (Other)
  Sender: FDA-Public Use
  Company Number: GB-JNJFOC-20120304236

PATIENT
  Age: 8 Year
  Sex: Male
  Weight: 23 kg

DRUGS (3)
  1. CHLORPHENIRAMINE TAB [Concomitant]
     Indication: PREMEDICATION
     Route: 048
     Dates: start: 20120306
  2. REMICADE [Suspect]
     Indication: CROHN'S DISEASE
     Route: 042
     Dates: start: 20120306
  3. AZATHIOPRINE [Concomitant]
     Indication: CROHN'S DISEASE
     Dosage: ONCE DAILY
     Route: 065

REACTIONS (5)
  - ABDOMINAL PAIN [None]
  - FACE OEDEMA [None]
  - VOMITING [None]
  - FLUSHING [None]
  - INFUSION RELATED REACTION [None]
